FAERS Safety Report 21574571 (Version 3)
Quarter: 2023Q2

REPORT INFORMATION
  Report Type: Spontaneous
  Country: JP (occurrence: JP)
  Receive Date: 20221109
  Receipt Date: 20230411
  Transmission Date: 20230721
  Serious: Yes (Hospitalization, Other)
  Sender: FDA-Public Use
  Company Number: JP-KYOWAKIRIN-2022AKK016819

PATIENT
  Age: 4 Decade
  Sex: Female

DRUGS (15)
  1. PEGFILGRASTIM [Suspect]
     Active Substance: PEGFILGRASTIM
     Indication: Colony stimulating factor therapy
     Dosage: 3.6 MILLIGRAM, Q3WK
     Route: 058
     Dates: start: 20220811, end: 20221013
  2. FLUOROURACIL [Suspect]
     Active Substance: FLUOROURACIL
     Indication: Breast cancer
     Dosage: 700 MILLIGRAM, Q3WK
     Route: 041
     Dates: start: 20220809, end: 20221011
  3. EPIRUBICIN HYDROCHLORIDE [Suspect]
     Active Substance: EPIRUBICIN HYDROCHLORIDE
     Indication: Breast cancer
     Dosage: 140 MILLIGRAM, Q3WK
     Route: 041
     Dates: start: 20220809, end: 20221011
  4. CYCLOPHOSPHAMIDE [Suspect]
     Active Substance: CYCLOPHOSPHAMIDE
     Indication: Breast cancer
     Dosage: 700 MILLIGRAM, Q3WK
     Route: 041
     Dates: start: 20220809, end: 20221011
  5. PALONOSETRON [Concomitant]
     Active Substance: PALONOSETRON
     Indication: Chemotherapy side effect prophylaxis
     Dosage: 0.75 MILLIGRAM, Q3WK
     Route: 041
     Dates: start: 20220809, end: 20221011
  6. DEXAMETHASONE SODIUM PHOSPHATE [Concomitant]
     Active Substance: DEXAMETHASONE SODIUM PHOSPHATE
     Indication: Chemotherapy side effect prophylaxis
     Dosage: UNK UNK, Q3WK
     Route: 041
     Dates: start: 20220809, end: 20221011
  7. GASTER [Concomitant]
     Active Substance: FAMOTIDINE
     Indication: Chemotherapy side effect prophylaxis
     Dosage: 20 MILLIGRAM, Q3WK
     Route: 041
     Dates: start: 20220809, end: 20221011
  8. EMEND [Concomitant]
     Active Substance: APREPITANT
     Indication: Chemotherapy side effect prophylaxis
     Dosage: UNK
     Route: 048
     Dates: start: 20220809, end: 20221013
  9. OLANZAPINE [Concomitant]
     Active Substance: OLANZAPINE
     Indication: Chemotherapy side effect prophylaxis
     Dosage: UNK UNK, Q3WK
     Route: 048
     Dates: start: 20220809
  10. METOCLOPRAMIDE [Concomitant]
     Active Substance: METOCLOPRAMIDE
     Indication: Chemotherapy side effect prophylaxis
     Dosage: UNK UNK, Q3WK
     Route: 048
     Dates: start: 20220809
  11. AMBROXOL HYDROCHLORIDE [Concomitant]
     Active Substance: AMBROXOL HYDROCHLORIDE
     Indication: Upper respiratory tract inflammation
     Dosage: UNK
     Route: 048
     Dates: start: 20221005, end: 20221125
  12. DEXTROMETHORPHAN HYDROBROMIDE\LYSOZYME HYDROCHLORIDE\POTASSIUM CRESOLS [Concomitant]
     Active Substance: DEXTROMETHORPHAN HYDROBROMIDE\LYSOZYME HYDROCHLORIDE\POTASSIUM CRESOLSULFONATE
     Indication: Upper respiratory tract inflammation
     Dosage: UNK
     Route: 048
     Dates: start: 20221005, end: 20221125
  13. TRANSAMIN [Concomitant]
     Active Substance: TRANEXAMIC ACID
     Indication: Upper respiratory tract inflammation
     Dosage: UNK
     Route: 048
     Dates: start: 20221005, end: 20221125
  14. URSO 1A PHARMA [Concomitant]
     Indication: Hepatic function abnormal
     Dosage: UNK
     Route: 048
     Dates: start: 20220920, end: 20221011
  15. GLYCYRON 2GO [Concomitant]
     Indication: Hepatic function abnormal
     Dosage: UNK
     Route: 048
     Dates: start: 20220920, end: 20221011

REACTIONS (1)
  - Interstitial lung disease [Recovered/Resolved]

NARRATIVE: CASE EVENT DATE: 20221028
